FAERS Safety Report 8897704 (Version 1)
Quarter: 2012Q4

REPORT INFORMATION
  Report Type: 
  Country: US (occurrence: US)
  Receive Date: 20121108
  Receipt Date: 20121108
  Transmission Date: 20130627
  Serious: No
  Sender: FDA-Public Use
  Company Number: US-AMGEN-USASP2012024888

PATIENT
  Age: 49 Year
  Sex: Female
  Weight: 80.27 kg

DRUGS (18)
  1. ENBREL [Suspect]
     Indication: PSORIASIS
     Dosage: 50 mg, qwk
     Route: 058
  2. ADVAIR [Concomitant]
     Dosage: UNK
  3. SINGULAIR [Concomitant]
     Dosage: 10 mg, UNK
  4. LISINOPRIL [Concomitant]
     Dosage: 30 mg, UNK
  5. PROAIR HFA [Concomitant]
     Dosage: UNK
  6. FISH OIL [Concomitant]
     Dosage: UNK
  7. CARVEDILOL [Concomitant]
     Dosage: 25 mg, UNK
  8. CYMBALTA [Concomitant]
     Dosage: 30 mg, UNK
  9. VITAMIN D2 [Concomitant]
     Dosage: 400 UNK, UNK
  10. CALCIUM [Concomitant]
     Dosage: UNK
  11. MAGNESIUM [Concomitant]
     Dosage: 200 mg, UNK
  12. GABAPENTIN [Concomitant]
     Dosage: 100 mg, UNK
  13. METFORMIN [Concomitant]
     Dosage: 500 mg, UNK
  14. LIPITOR [Concomitant]
     Dosage: 20 mg, UNK
  15. OMEPRAZOLE [Concomitant]
     Dosage: 20 mg, UNK
  16. OXYCODONE/APAP                     /00867901/ [Concomitant]
     Dosage: UNK
  17. TACLONEX [Concomitant]
     Dosage: UNK
  18. CALCIPOTRIENE [Concomitant]
     Dosage: 0.005 %, UNK

REACTIONS (3)
  - Dizziness [Unknown]
  - Psoriasis [Unknown]
  - Urinary tract infection [Unknown]
